FAERS Safety Report 6578429-5 (Version None)
Quarter: 2010Q1

REPORT INFORMATION
  Report Type: 
  Country: None (occurrence: None)
  Receive Date: 20100211
  Receipt Date: 20100205
  Transmission Date: 20100710
  Serious: Yes (Hospitalization, Other)
  Sender: FDA-Public Use
  Company Number: JP-B.I. PHARMACEUTICALS,INC./RIDGEFIELD-2009-BP-09368YA

PATIENT
  Age: 82 Year
  Sex: Male

DRUGS (11)
  1. HARNAL (TAMSULOSIN) ORODISPERSABLE CR [Suspect]
     Indication: RESIDUAL URINE
     Dosage: 0.1 MG
     Route: 048
     Dates: start: 20090115, end: 20090129
  2. SOLIFENACIN [Suspect]
     Indication: HYPERTONIC BLADDER
     Dosage: 2.5 MG
     Route: 048
     Dates: start: 20081211, end: 20081217
  3. SOLIFENACIN [Suspect]
     Dosage: 5 MG
     Route: 048
     Dates: start: 20081218, end: 20090107
  4. SOLIFENACIN [Suspect]
     Dosage: 10 MG
     Route: 048
     Dates: start: 20090108, end: 20090115
  5. SOLIFENACIN [Suspect]
     Dosage: 5 MG
     Route: 048
     Dates: start: 20090116, end: 20090129
  6. ZOSYN [Suspect]
     Indication: PNEUMONIA
     Dates: start: 20081225, end: 20090119
  7. SOLDEM 3A [Concomitant]
  8. POTACOL-R [Concomitant]
     Dates: start: 20081223, end: 20081224
  9. FIRSTCIN [Concomitant]
     Dates: start: 20081223, end: 20081224
  10. BFLUID [Concomitant]
     Dates: start: 20081223
  11. TIENAM [Concomitant]
     Dates: end: 20081211

REACTIONS (3)
  - HEPATIC FUNCTION ABNORMAL [None]
  - PNEUMONIA [None]
  - RESIDUAL URINE [None]
